FAERS Safety Report 13001404 (Version 12)
Quarter: 2021Q4

REPORT INFORMATION
  Report Type: Spontaneous
  Country: US (occurrence: US)
  Receive Date: 20161206
  Receipt Date: 20211216
  Transmission Date: 20220303
  Serious: No
  Sender: FDA-Public Use
  Company Number: US-PFIZER INC-2016554979

PATIENT
  Age: 72 Year
  Sex: Female
  Weight: 61 kg

DRUGS (3)
  1. AROMASIN [Suspect]
     Active Substance: EXEMESTANE
     Indication: Breast cancer
     Dosage: UNK, 1X/DAY
     Dates: start: 200409
  2. AROMASIN [Suspect]
     Active Substance: EXEMESTANE
     Indication: Invasive lobular breast carcinoma
     Dosage: UNK, 1X/DAY
     Dates: start: 200501, end: 2009
  3. AROMASIN [Suspect]
     Active Substance: EXEMESTANE
     Indication: Invasive ductal breast carcinoma
     Dosage: 25 MG

REACTIONS (7)
  - Dysphonia [Recovered/Resolved]
  - Sinus disorder [Unknown]
  - Pain [Unknown]
  - Nervousness [Unknown]
  - Neoplasm recurrence [Unknown]
  - Constipation [Unknown]
  - Off label use [Unknown]

NARRATIVE: CASE EVENT DATE: 20050101
